FAERS Safety Report 8434990-7 (Version None)
Quarter: 2012Q2

REPORT INFORMATION
  Report Type: 
  Country: None (occurrence: None)
  Receive Date: 20120614
  Receipt Date: 20120611
  Transmission Date: 20120825
  Serious: No
  Sender: FDA-Public Use
  Company Number: US-PFIZER INC-2012141355

PATIENT
  Sex: Female
  Weight: 93.4 kg

DRUGS (3)
  1. LYRICA [Suspect]
     Indication: NEUROPATHY PERIPHERAL
     Dosage: UNK
     Dates: start: 20110101, end: 20110101
  2. NEURONTIN [Concomitant]
     Indication: NEUROPATHY PERIPHERAL
     Dosage: 300 MG CAPSULE ORALLY ONE AT MORNING, ONE AT AFTERNOON AND TWO CAPSULE AT NIGHT
     Route: 048
     Dates: start: 20040101
  3. ADVAIR DISKUS 100/50 [Concomitant]
     Indication: ASTHMA
     Dosage: 250/50 UG, 2X/DAY

REACTIONS (2)
  - DIZZINESS [None]
  - MALAISE [None]
